FAERS Safety Report 5448472-8 (Version None)
Quarter: 2007Q3

REPORT INFORMATION
  Report Type: 
  Country: None (occurrence: None)
  Receive Date: 20070911
  Receipt Date: 20070907
  Transmission Date: 20080115
  Serious: Yes (Death, Other)
  Sender: FDA-Public Use
  Company Number: HQWYE525727JAN06

PATIENT
  Sex: Male
  Weight: 111.7 kg

DRUGS (16)
  1. PROGRAF [Suspect]
     Indication: PROPHYLAXIS AGAINST TRANSPLANT REJECTION
     Route: 048
     Dates: start: 20050630, end: 20060101
  2. PROGRAF [Suspect]
     Route: 048
     Dates: start: 20060101, end: 20060101
  3. PROGRAF [Suspect]
     Route: 048
     Dates: start: 20060101, end: 20060624
  4. NORVASC [Concomitant]
     Route: 048
  5. ACTIGALL [Concomitant]
     Route: 048
  6. BACTRIM [Concomitant]
     Route: 048
  7. METOPROLOL TARTRATE [Concomitant]
     Route: 048
  8. ASPIRIN [Concomitant]
     Route: 048
  9. DILAUDID [Concomitant]
     Dosage: 10 MG TABLET EVERY 4-6 HOURS PRN
     Route: 048
  10. ULTRAM [Concomitant]
     Dosage: 100 MG EVERY 4-6 HOURS FOR PAIN
     Route: 048
  11. FENTANYL [Concomitant]
     Dosage: 100 MCG/HR PATCH 72 HOUR; CHANGE EVERY 2 DAYS
     Route: 062
  12. COLACE [Concomitant]
     Route: 048
  13. SENNA [Concomitant]
     Dosage: 8.6 MG TABLET; 2-3 TABLETS ONCE DAILY
     Route: 048
  14. INFLUENZA VIRUS VACCINE POLYVALENT [Concomitant]
     Route: 030
     Dates: start: 20051216, end: 20051216
  15. MULTI-VITAMINS [Concomitant]
     Route: 048
  16. PERIDEX [Concomitant]
     Dosage: RINSE MOUTH IN AM AND PM
     Route: 048

REACTIONS (3)
  - ADENOCARCINOMA PANCREAS [None]
  - HEPATIC NEOPLASM MALIGNANT [None]
  - PANCREATIC CARCINOMA METASTATIC [None]
